FAERS Safety Report 9293691 (Version 2)
Quarter: 2013Q2

REPORT INFORMATION
  Report Type: Spontaneous
  Country: AU (occurrence: AU)
  Receive Date: 20130516
  Receipt Date: 20130521
  Transmission Date: 20140414
  Serious: Yes (Life-Threatening, Hospitalization, Other)
  Sender: FDA-Public Use
  Company Number: AU-UCBSA-085455

PATIENT
  Age: 70 Year
  Sex: Male

DRUGS (16)
  1. CIMZIA [Suspect]
     Dosage: UNKNOWN DOSE
     Dates: start: 20120910, end: 20121020
  2. METHOTREXATE [Suspect]
     Route: 030
     Dates: start: 20080101, end: 20121020
  3. PREDNISOLONE [Suspect]
     Dosage: 10 MG DAILY
     Dates: start: 20080101
  4. RITUXIMAB [Suspect]
     Dates: start: 20080101, end: 20120301
  5. TAMSULOSIN [Concomitant]
     Dosage: UNKNOWN DOSE
  6. GLICLAZIDE [Concomitant]
     Dosage: UNKNOWN DOSE
  7. NOVOMIX [Concomitant]
     Dosage: UNKNOWN DOSE
  8. HYDRALAZINE [Concomitant]
     Dosage: UNKNOWN DOSE
  9. ATORVASTATIN [Concomitant]
     Dosage: UNKNOWN DOSE
  10. TAMSULOSIN [Concomitant]
     Dosage: UNKNOWN DOSE
  11. DOMPERIDONE [Concomitant]
     Dosage: UNKNOWN DOSE
  12. ZOLADEX [Concomitant]
     Dosage: UNKNOWN DOSE
  13. TELMISARTAN HCT [Concomitant]
     Dosage: UNKNOWN DOSE
  14. ESOMEPRAZOLE [Concomitant]
     Dosage: UNKNOWN DOSE
  15. SERETIDE [Concomitant]
     Dosage: UNKNOWN DOSE
  16. ASPIRIN [Concomitant]
     Dosage: UNKNOWN DOSE

REACTIONS (1)
  - Pneumocystis jirovecii pneumonia [Unknown]
